FAERS Safety Report 14602306 (Version 2)
Quarter: 2018Q1

REPORT INFORMATION
  Report Type: Report from Study
  Country: None (occurrence: US)
  Receive Date: 20180306
  Receipt Date: 20180316
  Transmission Date: 20180509
  Serious: No
  Sender: FDA-Public Use
  Company Number: US-ABBVIE-18K-163-2273611-00

PATIENT
  Age: 48 Year
  Sex: Female
  Weight: 126.21 kg

DRUGS (2)
  1. HUMIRA [Suspect]
     Active Substance: ADALIMUMAB
     Route: 058
     Dates: start: 20180216
  2. HUMIRA [Suspect]
     Active Substance: ADALIMUMAB
     Indication: PSORIATIC ARTHROPATHY
     Route: 058
     Dates: start: 20160621, end: 20171221

REACTIONS (12)
  - Nasopharyngitis [Recovered/Resolved]
  - Influenza like illness [Unknown]
  - Therapeutic response shortened [Unknown]
  - Nausea [Recovered/Resolved]
  - Gait disturbance [Unknown]
  - Psoriasis [Unknown]
  - Asthenia [Recovered/Resolved]
  - Pain [Recovered/Resolved]
  - Inflammation [Unknown]
  - Chills [Recovered/Resolved]
  - Weight increased [Not Recovered/Not Resolved]
  - Pyrexia [Recovered/Resolved]

NARRATIVE: CASE EVENT DATE: 20171229
